FAERS Safety Report 5513691-9 (Version None)
Quarter: 2007Q4

REPORT INFORMATION
  Report Type: 
  Country: None (occurrence: None)
  Receive Date: 20071113
  Receipt Date: 20071030
  Transmission Date: 20080405
  Serious: Yes (Hospitalization)
  Sender: FDA-Public Use
  Company Number: JP-NOVOPROD-268972

PATIENT
  Age: 78 Year
  Sex: Male
  Weight: 50 kg

DRUGS (5)
  1. NOVORAPID CHU FLEXPEN [Suspect]
     Indication: INSULIN-REQUIRING TYPE II DIABETES MELLITUS
     Dosage: 12 IU, QD
     Dates: start: 20070201, end: 20070207
  2. NOVORAPID CHU FLEXPEN [Suspect]
     Dosage: UNK, UNK
     Dates: start: 20070701
  3. PIOGLITAZONE [Concomitant]
     Indication: DRUG USE FOR UNKNOWN INDICATION
     Dates: start: 20070207
  4. MITIGLINIDE [Concomitant]
     Indication: DRUG USE FOR UNKNOWN INDICATION
     Dates: start: 20070207, end: 20070701
  5. NATEGLINIDE [Concomitant]
     Indication: DRUG USE FOR UNKNOWN INDICATION
     Dates: start: 20070207

REACTIONS (3)
  - ANTI-INSULIN ANTIBODY POSITIVE [None]
  - AUTOANTIBODY POSITIVE [None]
  - HYPOGLYCAEMIA [None]
